FAERS Safety Report 6566562-3 (Version None)
Quarter: 2010Q1

REPORT INFORMATION
  Report Type: 
  Country: None (occurrence: None)
  Receive Date: 20100202
  Receipt Date: 20100121
  Transmission Date: 20100710
  Serious: Yes (Other)
  Sender: FDA-Public Use
  Company Number: JP-PFIZER INC-2009314658

PATIENT
  Age: 68 Year
  Sex: Female

DRUGS (5)
  1. ZITHROMAC SR [Suspect]
     Indication: PHARYNGITIS
     Dosage: 2 G, SINGLE
     Route: 048
     Dates: start: 20091209, end: 20091209
  2. MEDICON [Concomitant]
     Dosage: 15 MG/DAY
     Route: 048
     Dates: start: 20091209
  3. DASEN [Concomitant]
     Dosage: 10 MG/DAY
     Route: 048
     Dates: start: 20091209
  4. MUCODYNE [Concomitant]
     Indication: ASTHMA
     Dosage: 500 MG/DAY
     Route: 048
     Dates: start: 20091209
  5. HOKUNALIN [Concomitant]
     Indication: BRONCHITIS
     Dosage: 2 MG/DAY
     Route: 062
     Dates: start: 20091209

REACTIONS (5)
  - CHEST DISCOMFORT [None]
  - DYSGEUSIA [None]
  - FEELING ABNORMAL [None]
  - FLANK PAIN [None]
  - TREMOR [None]
